FAERS Safety Report 9218726 (Version 1)
Quarter: 2013Q2

REPORT INFORMATION
  Report Type: Spontaneous
  Country: US (occurrence: None)
  Receive Date: 20130405
  Receipt Date: 20130405
  Transmission Date: 20140414
  Serious: Yes (Other)
  Sender: FDA-Public Use
  Company Number: None

PATIENT
  Age: 67 Year
  Sex: Female
  Weight: 54.43 kg

DRUGS (2)
  1. ZOMETA [Suspect]
     Dosage: 3.08 MG Q 1-3 MONTHS IV
     Dates: start: 20100812, end: 20110213
  2. XGEVA [Suspect]
     Route: 058
     Dates: start: 20110505, end: 20120726

REACTIONS (1)
  - Osteonecrosis of jaw [None]
